FAERS Safety Report 4317923-4 (Version None)
Quarter: 2004Q1

REPORT INFORMATION
  Report Type: 
  Country: None (occurrence: None)
  Receive Date: 20040316
  Receipt Date: 20040310
  Transmission Date: 20041129
  Serious: Yes (Hospitalization)
  Sender: FDA-Public Use
  Company Number: BE-ROCHE-361239

PATIENT
  Age: 68 Year
  Sex: Male
  Weight: 94 kg

DRUGS (7)
  1. RIBAVIRIN [Suspect]
     Route: 048
     Dates: start: 20030821, end: 20031213
  2. PEG-INTERFERON ALFA 2A (RO 25-8310) [Suspect]
     Route: 058
     Dates: start: 20030821, end: 20031213
  3. CORVATARD [Concomitant]
     Dates: start: 19980615
  4. CORDARONE [Concomitant]
     Dates: start: 19980615
  5. ACCURETIC [Concomitant]
     Dates: start: 19980615
  6. MARCOUMAR [Concomitant]
     Dates: start: 19980615
  7. ZOCOR [Concomitant]
     Dates: start: 19980615

REACTIONS (4)
  - ANGINA PECTORIS [None]
  - HAEMATOCRIT DECREASED [None]
  - HAEMOGLOBIN DECREASED [None]
  - SYNCOPE [None]
